FAERS Safety Report 4300518-6 (Version None)
Quarter: 2004Q1

REPORT INFORMATION
  Report Type: 
  Country: None (occurrence: None)
  Receive Date: 20040218
  Receipt Date: 20040203
  Transmission Date: 20041129
  Serious: Yes (Hospitalization, Other)
  Sender: FDA-Public Use
  Company Number: USA040258267

PATIENT
  Age: 7 Year
  Sex: Male

DRUGS (3)
  1. STRATTERA [Suspect]
     Indication: ABNORMAL BEHAVIOUR
     Dates: start: 20040101
  2. STRATTERA [Suspect]
     Indication: IMPULSIVE BEHAVIOUR
     Dates: start: 20040101
  3. STRATTERA [Suspect]
     Indication: PSYCHOMOTOR HYPERACTIVITY
     Dates: start: 20040101

REACTIONS (2)
  - COMA [None]
  - GRAND MAL CONVULSION [None]
